FAERS Safety Report 8556428 (Version 3)
Quarter: 2014Q1

REPORT INFORMATION
  Report Type: Spontaneous
  Country: US (occurrence: US)
  Receive Date: 20120510
  Receipt Date: 20140219
  Transmission Date: 20141002
  Serious: Yes (Hospitalization, Other)
  Sender: FDA-Public Use
  Company Number: US-ASTRAZENECA-2012SE28442

PATIENT
  Age: 41 Year
  Sex: Male
  Weight: 118.4 kg

DRUGS (10)
  1. NEXIUM [Suspect]
     Indication: GASTROOESOPHAGEAL REFLUX DISEASE
     Route: 048
     Dates: start: 2003, end: 201309
  2. VICODIN [Concomitant]
     Indication: PAIN
     Dosage: 2 TABS 5MG 500MG BID
     Route: 048
     Dates: start: 2006
  3. JANUMET [Concomitant]
     Indication: DIABETES MELLITUS
     Dosage: 50MG 1000MG BID
     Route: 048
     Dates: start: 2013
  4. PRAVACHOL [Concomitant]
     Indication: CARDIAC FAILURE CONGESTIVE
     Route: 048
     Dates: start: 2008
  5. COZAAR [Concomitant]
     Indication: CARDIAC DISORDER
     Route: 048
     Dates: start: 2010
  6. NORVASC [Concomitant]
     Indication: CARDIAC DISORDER
     Route: 048
     Dates: start: 2010
  7. LASIX [Concomitant]
     Indication: CARDIAC DISORDER
     Route: 048
     Dates: start: 2010
  8. LOPID [Concomitant]
     Route: 048
  9. ASPIRIN [Concomitant]
     Route: 048
  10. OTC POTASSIUM [Concomitant]
     Indication: CARDIAC DISORDER
     Route: 048

REACTIONS (8)
  - Cardiac failure congestive [Unknown]
  - Rotator cuff syndrome [Unknown]
  - Laryngeal injury [Unknown]
  - Diabetes mellitus [Unknown]
  - Gastrooesophageal reflux disease [Unknown]
  - Off label use [Unknown]
  - Drug dose omission [Unknown]
  - Intentional drug misuse [Unknown]
